FAERS Safety Report 6179992-9 (Version None)
Quarter: 2009Q2

REPORT INFORMATION
  Report Type: 
  Country: None (occurrence: None)
  Receive Date: 20090501
  Receipt Date: 20090427
  Transmission Date: 20091009
  Serious: Yes (Hospitalization)
  Sender: FDA-Public Use
  Company Number: SP02363

PATIENT
  Age: 66 Year
  Sex: Female

DRUGS (4)
  1. MOVIPREP [Suspect]
     Indication: COLONOSCOPY
     Dosage: ORAL
     Route: 048
     Dates: start: 20090422, end: 20090423
  2. METFORMIN HCL [Concomitant]
  3. LISINOPRIL [Concomitant]
  4. METOPROLOL [Concomitant]

REACTIONS (2)
  - DEHYDRATION [None]
  - RENAL FAILURE ACUTE [None]
